FAERS Safety Report 22145407 (Version 1)
Quarter: 2023Q1

REPORT INFORMATION
  Report Type: Spontaneous
  Country: PT (occurrence: FR)
  Receive Date: 20230328
  Receipt Date: 20230328
  Transmission Date: 20230417
  Serious: Yes (Other)
  Sender: FDA-Public Use
  Company Number: None

PATIENT

DRUGS (3)
  1. ESLICARBAZEPINE ACETATE [Suspect]
     Active Substance: ESLICARBAZEPINE ACETATE
     Indication: Partial seizures
     Dosage: 400 MILLIGRAM, DAILY
     Route: 048
     Dates: start: 20221201
  2. BRIVIACT [Concomitant]
     Active Substance: BRIVARACETAM
     Dosage: 150 MILLIGRAM, DAILY
     Route: 048
     Dates: start: 20221201
  3. LAMICTAL [Concomitant]
     Active Substance: LAMOTRIGINE
     Dosage: 400 MILLIGRAM, DAILY
     Route: 048
     Dates: start: 20221201

REACTIONS (7)
  - Paraesthesia [Recovered/Resolved]
  - Depression [Recovered/Resolved]
  - Coordination abnormal [Recovered/Resolved]
  - Headache [Recovered/Resolved]
  - Fatigue [Recovered/Resolved]
  - Pruritus [Recovered/Resolved]
  - Underdose [Unknown]

NARRATIVE: CASE EVENT DATE: 20221201
